FAERS Safety Report 6816279-2 (Version None)
Quarter: 2010Q2

REPORT INFORMATION
  Report Type: 
  Country: None (occurrence: None)
  Receive Date: 20100630
  Receipt Date: 20100614
  Transmission Date: 20101027
  Serious: Yes (Hospitalization)
  Sender: FDA-Public Use
  Company Number: TPA2010A03629

PATIENT
  Age: 80 Year
  Sex: Female

DRUGS (2)
  1. PREVACID [Suspect]
     Indication: DYSPEPSIA
  2. PREVACID 24 HR [Suspect]
     Indication: DYSPEPSIA

REACTIONS (1)
  - HIP FRACTURE [None]
